FAERS Safety Report 5950326-5 (Version None)
Quarter: 2008Q4

REPORT INFORMATION
  Report Type: 
  Country: None (occurrence: None)
  Receive Date: 20081022
  Receipt Date: 20080710
  Transmission Date: 20090506
  Serious: No
  Sender: FDA-Public Use
  Company Number: ALL1-2008-01977

PATIENT
  Sex: Male

DRUGS (1)
  1. VYVANSE [Suspect]
     Dates: end: 20071201

REACTIONS (1)
  - ADVERSE DRUG REACTION [None]
